FAERS Safety Report 9323758 (Version 1)
Quarter: 2013Q2

REPORT INFORMATION
  Report Type: Spontaneous
  Country: GR (occurrence: GR)
  Receive Date: 20130603
  Receipt Date: 20130603
  Transmission Date: 20140414
  Serious: Yes (Other)
  Sender: FDA-Public Use
  Company Number: GR-JNJFOC-20130520448

PATIENT
  Age: 48 Year
  Sex: Male

DRUGS (7)
  1. REMICADE [Suspect]
     Indication: COLITIS ULCERATIVE
     Route: 042
     Dates: start: 201211
  2. REMICADE [Suspect]
     Indication: COLITIS ULCERATIVE
     Route: 042
     Dates: start: 201106
  3. PURINETHOL [Suspect]
     Indication: COLITIS ULCERATIVE
     Route: 065
     Dates: start: 201106
  4. CORTICOSTEROIDS [Concomitant]
     Indication: ASTHMA
     Route: 065
  5. CORTICOSTEROIDS [Concomitant]
     Indication: COLITIS
     Route: 065
  6. 5ASA [Concomitant]
     Indication: COLITIS ULCERATIVE
     Route: 065
     Dates: start: 2010
  7. 5ASA [Concomitant]
     Indication: COLITIS ULCERATIVE
     Route: 065
     Dates: end: 2009

REACTIONS (6)
  - Therapeutic response decreased [Recovering/Resolving]
  - Arthritis [Unknown]
  - Respiratory tract infection [Unknown]
  - Dermatitis allergic [Unknown]
  - Rhinitis allergic [Unknown]
  - Infusion related reaction [Unknown]
